FAERS Safety Report 7216301-8 (Version None)
Quarter: 2011Q1

REPORT INFORMATION
  Report Type: 
  Country: None (occurrence: None)
  Receive Date: 20110105
  Receipt Date: 20110105
  Transmission Date: 20110831
  Serious: Yes (Life-Threatening)
  Sender: FDA-Public Use
  Company Number: None

PATIENT
  Sex: Female
  Weight: 62.5964 kg

DRUGS (4)
  1. DARVOCET A500 [Suspect]
     Indication: BACK PAIN
     Dosage: 1 EVERY 6 HOURS AS NEED FOR PAIN
  2. DARVOCET A500 [Suspect]
     Indication: MUSCULOSKELETAL PAIN
     Dosage: 1 EVERY 6 HOURS AS NEED FOR PAIN
  3. DARVOCET A500 [Suspect]
     Indication: NECK PAIN
     Dosage: 1 EVERY 6 HOURS AS NEED FOR PAIN
  4. DARVOCET-N 100 [Suspect]

REACTIONS (2)
  - HEART RATE INCREASED [None]
  - DYSPNOEA [None]
